FAERS Safety Report 5079426-1 (Version None)
Quarter: 2006Q3

REPORT INFORMATION
  Report Type: 
  Country: None (occurrence: None)
  Receive Date: 20060814
  Receipt Date: 20060619
  Transmission Date: 20061208
  Serious: Yes (Disabling)
  Sender: FDA-Public Use
  Company Number: GB-ROCHE-452577

PATIENT
  Age: 62 Year
  Sex: Male
  Weight: 88 kg

DRUGS (2)
  1. LARIAM [Suspect]
     Route: 048
     Dates: start: 20060213, end: 20060313
  2. TEOPTIC [Concomitant]
     Route: 047

REACTIONS (5)
  - ANXIETY [None]
  - DEPRESSION [None]
  - PANIC ATTACK [None]
  - PSYCHIATRIC SYMPTOM [None]
  - SUICIDAL IDEATION [None]
